FAERS Safety Report 14639174 (Version 1)
Quarter: 2018Q1

REPORT INFORMATION
  Report Type: Spontaneous
  Country: US (occurrence: US)
  Receive Date: 20180315
  Receipt Date: 20180315
  Transmission Date: 20180509
  Serious: No
  Sender: FDA-Public Use
  Company Number: US-ENDO PHARMACEUTICALS INC-2017-002465

PATIENT
  Sex: Female

DRUGS (3)
  1. PRIMIDONE TABLETS 50MG [Suspect]
     Active Substance: PRIMIDONE
     Indication: ESSENTIAL TREMOR
     Dosage: 2 DF, OD (EVERY MORNING)
     Route: 048
     Dates: start: 2014
  2. PRIMIDONE TABLETS 50MG [Suspect]
     Active Substance: PRIMIDONE
     Dosage: 3 DF, DAILY (1 TABLET IN THE MORNING AND 2 TABLETS AT NIGH)
     Route: 048
     Dates: start: 2017
  3. PRIMIDONE TABLETS 50MG [Suspect]
     Active Substance: PRIMIDONE
     Dosage: 2 DF, OD (EVERY MORNING)
     Route: 048
     Dates: start: 2017

REACTIONS (1)
  - Breast tenderness [Recovered/Resolved]

NARRATIVE: CASE EVENT DATE: 2017
